FAERS Safety Report 15453960 (Version 1)
Quarter: 2018Q4

REPORT INFORMATION
  Report Type: Report from Study
  Country: FR (occurrence: FR)
  Receive Date: 20181002
  Receipt Date: 20181002
  Transmission Date: 20190204
  Serious: Yes (Other)
  Sender: FDA-Public Use
  Company Number: FR-ROCHE-2190940

PATIENT

DRUGS (2)
  1. VEMURAFENIB. [Suspect]
     Active Substance: VEMURAFENIB
     Indication: MALIGNANT MELANOMA
     Route: 065
  2. COBIMETINIB. [Suspect]
     Active Substance: COBIMETINIB
     Indication: MALIGNANT MELANOMA
     Route: 065

REACTIONS (9)
  - General physical condition abnormal [Unknown]
  - Musculoskeletal disorder [Unknown]
  - Neurotoxicity [Unknown]
  - Ejection fraction abnormal [Unknown]
  - Toxicity to various agents [Unknown]
  - Gastrointestinal disorder [Unknown]
  - Pulmonary toxicity [Unknown]
  - Skin toxicity [Unknown]
  - Eye disorder [Unknown]
